FAERS Safety Report 7472950-3 (Version None)
Quarter: 2011Q1

REPORT INFORMATION
  Report Type: 
  Country: None (occurrence: None)
  Receive Date: 20110302
  Receipt Date: 20101221
  Transmission Date: 20110831
  Serious: Yes (Death)
  Sender: FDA-Public Use
  Company Number: 163-21880-10112649

PATIENT
  Age: 70 Year
  Sex: Female

DRUGS (3)
  1. REVLIMID [Suspect]
     Indication: MYELODYSPLASTIC SYNDROME
     Dosage: 10 MG, DAILY X 28 DAYS, PO
     Route: 048
     Dates: start: 20101027, end: 20101128
  2. INDOMETHACIN [Concomitant]
  3. PREDNISONE [Concomitant]

REACTIONS (1)
  - UROSEPSIS [None]
